FAERS Safety Report 10724104 (Version 2)
Quarter: 2015Q2

REPORT INFORMATION
  Report Type: Report from Study
  Country: US (occurrence: US)
  Receive Date: 20150120
  Receipt Date: 20150420
  Transmission Date: 20150821
  Serious: Yes (Congenital Anomaly, Other)
  Sender: FDA-Public Use
  Company Number: US-UCBSA-2015001011

PATIENT
  Age: 0 Year
  Sex: Male
  Weight: 2.6 kg

DRUGS (19)
  1. CAFFEINE. [Concomitant]
     Active Substance: CAFFEINE
     Indication: PRODUCT USED FOR UNKNOWN INDICATION
     Dosage: 1 SERVING, FREQUENCY-3.5 WEEKLY, 1 EVERY OTHER DAY
     Route: 064
     Dates: start: 20131016, end: 20140313
  2. TYLENOL [Concomitant]
     Active Substance: ACETAMINOPHEN
     Dosage: 650 MG, WEEKLY (QW)
     Route: 063
     Dates: start: 20131106, end: 20140315
  3. PEPCID AC [Concomitant]
     Active Substance: FAMOTIDINE
     Indication: DYSPEPSIA
     Dosage: 1 DF (PILL), ONCE DAILY (QD)
     Route: 064
     Dates: start: 20140401, end: 20140430
  4. PRENATAL VITAMINS [Concomitant]
     Active Substance: VITAMINS
     Indication: PRODUCT USED FOR UNKNOWN INDICATION
     Dosage: 1 DF (PILL) , ONCE DAILY (QD)
     Route: 064
     Dates: start: 20131016, end: 20140624
  5. ATENOLOL. [Concomitant]
     Active Substance: ATENOLOL
     Indication: HYPERTENSION
     Dosage: 12.5 MG, ONCE DAILY (QD)
     Route: 064
     Dates: start: 20140420, end: 20140624
  6. PEPCID AC [Concomitant]
     Active Substance: FAMOTIDINE
     Dosage: 2 DF (PILLS), ONCE DAILY (QD)
     Route: 064
     Dates: start: 20140501, end: 20140624
  7. AZATHIOPRINE. [Concomitant]
     Active Substance: AZATHIOPRINE
     Indication: CROHN^S DISEASE
     Dosage: 200 MG, ONCE DAILY (QD)
     Route: 064
     Dates: start: 20131016, end: 20131201
  8. TUMS [Concomitant]
     Active Substance: CALCIUM CARBONATE
     Indication: DYSPEPSIA
     Dosage: UNK, AS NEEDED (PRN)
     Route: 064
     Dates: start: 20131201, end: 20140624
  9. CERTOLIZUMAB PEGOL RA [Suspect]
     Active Substance: CERTOLIZUMAB PEGOL
     Indication: RHEUMATOID ARTHRITIS
     Dosage: 400 MG, MONTHLY
     Route: 064
     Dates: start: 20131016, end: 20140624
  10. TYLENOL [Concomitant]
     Active Substance: ACETAMINOPHEN
     Dosage: 2 DF (PILLS) , MONTHLY (QM)
     Route: 064
     Dates: start: 20140316, end: 20140624
  11. ROBITUSSIN DM [Concomitant]
     Active Substance: DEXTROMETHORPHAN HYDROBROMIDE\GUAIFENESIN
     Indication: NASOPHARYNGITIS
     Dosage: 10 ML, FREQUENCY-2, UNIT- TOTAL.
     Route: 064
     Dates: start: 20140129, end: 20140219
  12. CERTOLIZUMAB PEGOL RA [Suspect]
     Active Substance: CERTOLIZUMAB PEGOL
     Indication: CROHN^S DISEASE
  13. ZOLOFT [Concomitant]
     Active Substance: SERTRALINE HYDROCHLORIDE
     Indication: DEPRESSION
     Dosage: 1 DF (PILL) , ONCE DAILY (QD)
     Route: 064
     Dates: start: 20131016, end: 20131029
  14. VITAMIN B12 [Concomitant]
     Active Substance: CYANOCOBALAMIN
     Indication: PRODUCT USED FOR UNKNOWN INDICATION
     Dosage: 500 ?G, ONCE DAILY (QD)
     Route: 064
     Dates: start: 20131016, end: 20131130
  15. FLUZONE [Concomitant]
     Active Substance: INFLUENZA A VIRUS A/CALIFORNIA/7/2009 X-179A (H1N1) ANTIGEN (FORMALDEHYDE INACTIVATED)\INFLUENZA A VIRUS A/VICTORIA/210/2009 X-187 (H3N2) ANTIGEN (FORMALDEHYDE INACTIVATED)\INFLUENZA B VIRUS B/BRISBANE/60/2008 ANTIGEN (FORMALDEHYDE INACTIVATED)
     Indication: PRODUCT USED FOR UNKNOWN INDICATION
     Dosage: 1 DF, TOTAL, INJECTED
     Route: 064
     Dates: start: 20131119, end: 20131119
  16. VITAMIN D [Concomitant]
     Active Substance: CHOLECALCIFEROL
     Indication: PRODUCT USED FOR UNKNOWN INDICATION
     Dosage: 1000 IU, ONCE DAILY (QD)
     Route: 064
     Dates: start: 20131016, end: 20131130
  17. CAFFEINE. [Concomitant]
     Active Substance: CAFFEINE
     Dosage: 1 SERVING, FREQUENCY- TWICE MONTHLY.
     Route: 064
     Dates: start: 20140314, end: 20140624
  18. TYLENOL [Concomitant]
     Active Substance: ACETAMINOPHEN
     Indication: ARTHRALGIA
     Dosage: 650 MG, ONCE DAILY (QD)
     Route: 064
     Dates: start: 20131030, end: 20131030
  19. ZYRTEC [Concomitant]
     Active Substance: CETIRIZINE HYDROCHLORIDE
     Indication: HYPERSENSITIVITY
     Dosage: 1 DF (PILL), ONCE DAILY (QD)
     Route: 064
     Dates: start: 20140212, end: 20140315

REACTIONS (2)
  - Foetal exposure during pregnancy [Unknown]
  - Testicular atrophy [Unknown]

NARRATIVE: CASE EVENT DATE: 20131016
